FAERS Safety Report 4714982-1 (Version None)
Quarter: 2005Q3

REPORT INFORMATION
  Report Type: 
  Country: None (occurrence: None)
  Receive Date: 20050715
  Receipt Date: 20050624
  Transmission Date: 20060218
  Serious: No
  Sender: FDA-Public Use
  Company Number: JP-BOEHRINGER INGELHEIM PHARMACEUTICALS, INC.-2005-BP-10885NB

PATIENT
  Sex: Female
  Weight: 75 kg

DRUGS (8)
  1. MICARDIS [Suspect]
     Indication: HYPERTENSION
     Route: 048
     Dates: start: 20040406
  2. FLUTIDE [Suspect]
     Route: 055
     Dates: start: 20050323
  3. LINOLOSAL [Suspect]
     Route: 042
  4. BRONICA [Concomitant]
     Indication: ASTHMA
     Route: 048
     Dates: start: 20050420
  5. FLUITRAN [Concomitant]
     Route: 048
     Dates: start: 20040406, end: 20050420
  6. HUSCODE [Concomitant]
     Route: 048
     Dates: start: 20041229
  7. HOKUNALIN TAPE [Concomitant]
     Route: 062
     Dates: start: 20040525
  8. MEPTIN AIR [Concomitant]
     Route: 055
     Dates: start: 20050225

REACTIONS (1)
  - ALOPECIA [None]
